FAERS Safety Report 20950787 (Version 1)
Quarter: 2022Q2

REPORT INFORMATION
  Report Type: Spontaneous
  Country: MA (occurrence: MA)
  Receive Date: 20220613
  Receipt Date: 20220613
  Transmission Date: 20220721
  Serious: Yes (Hospitalization, Other)
  Sender: FDA-Public Use
  Company Number: MA-MLMSERVICE-20220223-3392433-1

PATIENT

DRUGS (6)
  1. OLANZAPINE [Interacting]
     Active Substance: OLANZAPINE
     Indication: Bipolar I disorder
     Dosage: 10 MG/DAY
     Route: 065
  2. OLANZAPINE [Interacting]
     Active Substance: OLANZAPINE
     Indication: Mania
     Dosage: 20 MG/DAY
     Route: 065
  3. VALPROATE SODIUM [Interacting]
     Active Substance: VALPROATE SODIUM
     Indication: Mania
     Dosage: 1500 MG/DAY
     Route: 065
  4. VALPROATE SODIUM [Interacting]
     Active Substance: VALPROATE SODIUM
     Indication: Bipolar I disorder
  5. DIAZEPAM [Concomitant]
     Active Substance: DIAZEPAM
     Indication: Bipolar I disorder
     Dosage: 30 MG/DAY
     Route: 065
  6. DIAZEPAM [Concomitant]
     Active Substance: DIAZEPAM
     Indication: Mania
     Dosage: 5 MG/WEEK
     Route: 065

REACTIONS (3)
  - Hepatitis cholestatic [Recovered/Resolved]
  - Drug-induced liver injury [Recovered/Resolved]
  - Drug interaction [Recovered/Resolved]
